FAERS Safety Report 5535298-X (Version None)
Quarter: 2007Q4

REPORT INFORMATION
  Report Type: 
  Country: None (occurrence: None)
  Receive Date: 20071204
  Receipt Date: 20071204
  Transmission Date: 20080405
  Serious: Yes (Life-Threatening, Hospitalization)
  Sender: FDA-Public Use
  Company Number: None

PATIENT
  Age: 54 Year
  Sex: Male

DRUGS (2)
  1. EXUBERA [Suspect]
  2. AXILLARY BLOCK [Suspect]

REACTIONS (4)
  - PHRENIC NERVE PARALYSIS [None]
  - PNEUMONITIS [None]
  - RESPIRATORY DISTRESS [None]
  - SLEEP APNOEA SYNDROME [None]
